FAERS Safety Report 9400184 (Version 1)
Quarter: 2013Q3

REPORT INFORMATION
  Report Type: Spontaneous
  Country: US (occurrence: US)
  Receive Date: 20130715
  Receipt Date: 20130715
  Transmission Date: 20140515
  Serious: Yes (Death, Other)
  Sender: FDA-Public Use
  Company Number: US-PFIZER INC-2013203761

PATIENT
  Age: 44 Year
  Sex: Male

DRUGS (2)
  1. FLUOXETINE HCL [Suspect]
     Dosage: UNK
  2. HYDROXYZINE PAMOATE [Suspect]
     Dosage: UNK

REACTIONS (5)
  - Overdose [Fatal]
  - Toxicity to various agents [Fatal]
  - Hepatic steatosis [Fatal]
  - Hepatic cirrhosis [Fatal]
  - Cardiomegaly [Unknown]
